FAERS Safety Report 8405192-5 (Version None)
Quarter: 2012Q2

REPORT INFORMATION
  Report Type: 
  Country: None (occurrence: None)
  Receive Date: 20120603
  Receipt Date: 20120524
  Transmission Date: 20120825
  Serious: Yes (Hospitalization)
  Sender: FDA-Public Use
  Company Number: JP-VERTEX PHARMACEUTICALS INC.-AE-2012-007333

PATIENT
  Age: 70 Year
  Sex: Male

DRUGS (8)
  1. TELAVIC (TELAPREVIR) [Suspect]
     Indication: HEPATITIS C
     Route: 048
     Dates: start: 20120229, end: 20120509
  2. LANSOPRAZOLE [Concomitant]
     Route: 048
     Dates: start: 20120514, end: 20120525
  3. ZOLPIDEM [Concomitant]
     Indication: INSOMNIA
     Route: 048
     Dates: start: 20120514
  4. REBETOL [Concomitant]
     Indication: HEPATITIS C
     Route: 048
     Dates: start: 20120229, end: 20120509
  5. MAGMITT [Concomitant]
     Route: 048
     Dates: start: 20120522, end: 20120525
  6. ZOLPIDEM [Concomitant]
     Route: 048
     Dates: start: 20120515, end: 20120515
  7. ACETAMINOPHEN [Concomitant]
     Route: 048
     Dates: start: 20120514
  8. PEG-INTRON [Concomitant]
     Indication: HEPATITIS C
     Route: 051
     Dates: start: 20120229, end: 20120509

REACTIONS (2)
  - RASH [None]
  - ANAEMIA [None]
